FAERS Safety Report 18172259 (Version 1)
Quarter: 2020Q3

REPORT INFORMATION
  Report Type: Spontaneous
  Country: US (occurrence: US)
  Receive Date: 20200820
  Receipt Date: 20200820
  Transmission Date: 20201103
  Serious: No
  Sender: FDA-Public Use
  Company Number: US-HORIZON-BUP-0042-2020

PATIENT
  Age: 31 Year
  Sex: Female

DRUGS (1)
  1. BUPHENYL [Suspect]
     Active Substance: SODIUM PHENYLBUTYRATE
     Dosage: 7,500MG TABLETS 3 TIMES DAILY
     Route: 048
     Dates: start: 20140612

REACTIONS (2)
  - Off label use [Unknown]
  - Weight increased [Unknown]
